FAERS Safety Report 21735995 (Version 1)
Quarter: 2022Q4

REPORT INFORMATION
  Report Type: Spontaneous
  Country: US (occurrence: US)
  Receive Date: 20221215
  Receipt Date: 20221215
  Transmission Date: 20230112
  Serious: No
  Sender: FDA-Public Use
  Company Number: US-JNJFOC-20221221219

PATIENT
  Age: 56 Year
  Sex: Male

DRUGS (1)
  1. ZYRTEC [Suspect]
     Active Substance: CETIRIZINE HYDROCHLORIDE
     Indication: Hypersensitivity
     Dosage: ONE A DAY EVERY MORNING, I WAS TAKING THESE FOR ALMOST A MONTH
     Route: 065
     Dates: start: 20221111

REACTIONS (1)
  - Drug ineffective [Unknown]
